FAERS Safety Report 17282606 (Version 1)
Quarter: 2020Q1

REPORT INFORMATION
  Report Type: Spontaneous
  Country: US (occurrence: US)
  Receive Date: 20200117
  Receipt Date: 20200117
  Transmission Date: 20200409
  Serious: Yes (Other)
  Sender: FDA-Public Use
  Company Number: None

PATIENT
  Age: 47 Year
  Sex: Female
  Weight: 112.5 kg

DRUGS (6)
  1. LIDOCAINE. [Suspect]
     Active Substance: LIDOCAINE
     Indication: SURGERY
     Dosage: ?          QUANTITY:10 CC;OTHER FREQUENCY:GIVEN DURING SURGE;?
     Route: 058
     Dates: start: 20200116, end: 20200116
  2. XANAX [Concomitant]
     Active Substance: ALPRAZOLAM
  3. NOVOLOG [Concomitant]
     Active Substance: INSULIN ASPART
  4. METFORMIN [Concomitant]
     Active Substance: METFORMIN HYDROCHLORIDE
  5. NORTRIPTYLINE (LOW DOSE) [Concomitant]
  6. WATER PILL (CVS CAFFEINE FREE) [Concomitant]

REACTIONS (4)
  - Agitation [None]
  - Abnormal behaviour [None]
  - Aggression [None]
  - Anger [None]

NARRATIVE: CASE EVENT DATE: 20200116
